FAERS Safety Report 16944157 (Version 2)
Quarter: 2019Q4

REPORT INFORMATION
  Report Type: Other
  Country: GB (occurrence: GB)
  Receive Date: 20191022
  Receipt Date: 20191224
  Transmission Date: 20200122
  Serious: Yes (Hospitalization)
  Sender: FDA-Public Use
  Company Number: GB-EMCURE PHARMACEUTICALS LTD-2019-EPL-0948

PATIENT
  Age: 48 Year
  Sex: Male
  Weight: 72 kg

DRUGS (1)
  1. SERTRALINE HYDROCHLORIDE. [Suspect]
     Active Substance: SERTRALINE HYDROCHLORIDE
     Indication: ANXIETY
     Dosage: 50 MILLIGRAM
     Route: 048
     Dates: start: 20190812, end: 20190821

REACTIONS (1)
  - Hiccups [Not Recovered/Not Resolved]

NARRATIVE: CASE EVENT DATE: 20190812
